FAERS Safety Report 11842536 (Version 1)
Quarter: 2015Q4

REPORT INFORMATION
  Report Type: Spontaneous
  Country: None (occurrence: None)
  Receive Date: 20151216
  Receipt Date: 20151216
  Transmission Date: 20160305
  Serious: Yes (Disabling)
  Sender: FDA-Public Use
  Company Number: None

PATIENT
  Age: 51 Year
  Sex: Female
  Weight: 70.31 kg

DRUGS (2)
  1. LORAZIPAM [Concomitant]
  2. BRINTELLIX [Suspect]
     Active Substance: VORTIOXETINE HYDROBROMIDE
     Indication: DEPRESSION
     Dates: start: 20151016, end: 20151106

REACTIONS (7)
  - Feeling abnormal [None]
  - Anxiety [None]
  - Irritability [None]
  - Agitation [None]
  - Anger [None]
  - Restlessness [None]
  - Abnormal behaviour [None]

NARRATIVE: CASE EVENT DATE: 20151030
